FAERS Safety Report 15261806 (Version 1)
Quarter: 2018Q3

REPORT INFORMATION
  Report Type: Spontaneous
  Country: US (occurrence: US)
  Receive Date: 20180719
  Receipt Date: 20180719
  Transmission Date: 20181010
  Serious: Yes (Hospitalization)
  Sender: FDA-Public Use
  Company Number: None

PATIENT
  Age: 67 Year
  Sex: Female

DRUGS (2)
  1. SANCUSO [Suspect]
     Active Substance: GRANISETRON
     Indication: NAUSEA
     Dosage: ?          OTHER FREQUENCY:EVERY 7 DAYS;OTHER ROUTE:DIS?
     Dates: start: 20151009
  2. SANCUSO [Suspect]
     Active Substance: GRANISETRON
     Indication: VOMITING
     Dosage: ?          OTHER FREQUENCY:EVERY 7 DAYS;OTHER ROUTE:DIS?
     Dates: start: 20151009

REACTIONS (1)
  - Obstruction [None]
